FAERS Safety Report 6238079-7 (Version None)
Quarter: 2009Q2

REPORT INFORMATION
  Report Type: 
  Country: None (occurrence: None)
  Receive Date: 20090622
  Receipt Date: 20090617
  Transmission Date: 20091009
  Serious: Yes (Hospitalization)
  Sender: FDA-Public Use
  Company Number: US-B.I. PHARMACEUTICALS,INC./RIDGEFIELD-2009-BP-07415BP

PATIENT
  Sex: Male

DRUGS (3)
  1. SPIRIVA [Suspect]
     Indication: CHRONIC OBSTRUCTIVE PULMONARY DISEASE
     Dosage: 18 MCG
     Route: 055
     Dates: start: 20090101
  2. LUMIGAN [Concomitant]
     Indication: GLAUCOMA
     Dates: start: 20080101
  3. METFORMIN HCL [Concomitant]
     Indication: DIABETES MELLITUS
     Dates: start: 20080101

REACTIONS (2)
  - ATRIAL FIBRILLATION [None]
  - VISION BLURRED [None]
